FAERS Safety Report 9059729 (Version 2)
Quarter: 2013Q1

REPORT INFORMATION
  Report Type: Spontaneous
  Country: US (occurrence: US)
  Receive Date: 20130211
  Receipt Date: 20130305
  Transmission Date: 20140127
  Serious: Yes (Death, Hospitalization)
  Sender: FDA-Public Use
  Company Number: US-GILEAD-2013-0069560

PATIENT
  Age: 69 None
  Sex: Female

DRUGS (7)
  1. LETAIRIS [Suspect]
     Indication: PULMONARY HYPERTENSION
     Dosage: 10 MG, QD
     Route: 048
     Dates: start: 20120121, end: 201302
  2. LETAIRIS [Suspect]
     Indication: CHRONIC OBSTRUCTIVE PULMONARY DISEASE
  3. LETAIRIS [Suspect]
     Indication: CREST SYNDROME
  4. AMLODIPINE [Concomitant]
  5. ADCIRCA [Concomitant]
  6. FLUTICASONE [Concomitant]
  7. GLUCOSAMINE [Concomitant]

REACTIONS (7)
  - Oxygen consumption increased [Not Recovered/Not Resolved]
  - Dyspnoea [Not Recovered/Not Resolved]
  - Lung disorder [Fatal]
  - Pulmonary hypertension [Fatal]
  - Lung neoplasm malignant [Fatal]
  - CREST syndrome [Fatal]
  - Chronic obstructive pulmonary disease [Fatal]
